FAERS Safety Report 4536154-6 (Version None)
Quarter: 2004Q4

REPORT INFORMATION
  Report Type: 
  Country: None (occurrence: None)
  Receive Date: 20041220
  Receipt Date: 20041208
  Transmission Date: 20050328
  Serious: Yes (Other)
  Sender: FDA-Public Use
  Company Number: 2004107123

PATIENT
  Sex: Male

DRUGS (1)
  1. NEURONTIN [Suspect]
     Indication: ILL-DEFINED DISORDER
     Dosage: 4000 MG, ORAL
     Route: 048
     Dates: end: 20040101

REACTIONS (2)
  - DRUG WITHDRAWAL SYNDROME [None]
  - SURGERY [None]
